FAERS Safety Report 9390999 (Version 1)
Quarter: 2013Q3

REPORT INFORMATION
  Report Type: Spontaneous
  Country: US (occurrence: None)
  Receive Date: 20130705
  Receipt Date: 20130705
  Transmission Date: 20140515
  Serious: Yes (Hospitalization)
  Sender: FDA-Public Use
  Company Number: None

PATIENT
  Age: 72 Year
  Sex: Male
  Weight: 99.79 kg

DRUGS (17)
  1. HUMIRA [Suspect]
     Indication: PSORIASIS
     Route: 058
     Dates: start: 20110923, end: 20130301
  2. COUMADIN [Concomitant]
  3. ALLOPURINOL [Concomitant]
  4. BACLOFEN [Concomitant]
  5. CARDIZEM CD [Concomitant]
  6. CARVEDILOL [Concomitant]
  7. FLOMAX [Concomitant]
  8. ISOSORBIDE DINITRATE [Concomitant]
  9. LACTULOSE [Concomitant]
  10. LIPITOR [Concomitant]
  11. PROBENECID [Concomitant]
  12. REQUIP [Concomitant]
  13. TRILIPIX [Concomitant]
  14. LASIX [Concomitant]
  15. NTG [Concomitant]
  16. XANAX [Concomitant]
  17. OXYCODONE [Concomitant]

REACTIONS (5)
  - Weight increased [None]
  - Dyspnoea [None]
  - Malaise [None]
  - Cardiac failure congestive [None]
  - Weight decreased [None]
